FAERS Safety Report 24345458 (Version 1)
Quarter: 2024Q3

REPORT INFORMATION
  Report Type: Spontaneous
  Country: US (occurrence: US)
  Receive Date: 20240920
  Receipt Date: 20240920
  Transmission Date: 20241016
  Serious: No
  Sender: BAUSCH AND LOMB
  Company Number: US-BAUSCH-BL-2024-013741

PATIENT
  Sex: Female

DRUGS (1)
  1. XIFAXAN [Suspect]
     Active Substance: RIFAXIMIN
     Indication: Product used for unknown indication
     Route: 048
     Dates: start: 20240909, end: 202409

REACTIONS (5)
  - Abdominal discomfort [Unknown]
  - Feeling abnormal [Unknown]
  - Nausea [Unknown]
  - Product label confusion [Unknown]
  - Therapy interrupted [Unknown]
